FAERS Safety Report 16283617 (Version 1)
Quarter: 2019Q2

REPORT INFORMATION
  Report Type: Spontaneous
  Country: US (occurrence: US)
  Receive Date: 20190507
  Receipt Date: 20190507
  Transmission Date: 20190711
  Serious: Yes (Hospitalization)
  Sender: FDA-Public Use
  Company Number: US-LUNDBECK-DKLU2071635

PATIENT
  Age: 16 Year
  Sex: Female

DRUGS (7)
  1. CLOBAZAM. [Interacting]
     Active Substance: CLOBAZAM
     Route: 065
  2. LEVETIRACETAM. [Concomitant]
     Active Substance: LEVETIRACETAM
     Indication: SEIZURE
     Route: 065
  3. CLOBAZAM. [Suspect]
     Active Substance: CLOBAZAM
     Indication: SEIZURE
     Route: 048
  4. OXCARBAZEPINE. [Interacting]
     Active Substance: OXCARBAZEPINE
     Indication: SEIZURE
     Route: 048
  5. OXCARBAZEPINE. [Interacting]
     Active Substance: OXCARBAZEPINE
     Route: 048
  6. OMEPRAZOLE. [Interacting]
     Active Substance: OMEPRAZOLE
     Indication: PRODUCT USED FOR UNKNOWN INDICATION
     Route: 048
  7. LEVETIRACETAM. [Concomitant]
     Active Substance: LEVETIRACETAM
     Route: 065

REACTIONS (4)
  - Potentiating drug interaction [Recovered/Resolved]
  - Cardiovascular disorder [Recovered/Resolved]
  - Respiratory failure [Recovered/Resolved]
  - Hypothermia [Recovered/Resolved]
